FAERS Safety Report 4419115-7 (Version None)
Quarter: 2004Q3

REPORT INFORMATION
  Report Type: 
  Country: None (occurrence: None)
  Receive Date: 20040809
  Receipt Date: 20040115
  Transmission Date: 20050211
  Serious: No
  Sender: FDA-Public Use
  Company Number: US-GLAXOSMITHKLINE-A0493495A

PATIENT
  Age: 44 Year
  Sex: Female

DRUGS (7)
  1. PAXIL CR [Suspect]
     Indication: DEPRESSION
     Dosage: 40MG PER DAY
     Route: 048
  2. WELLBUTRIN [Suspect]
     Indication: DEPRESSION
     Route: 048
  3. ALBUTEROL [Concomitant]
  4. WELLBUTRIN [Concomitant]
  5. FLOVENT [Concomitant]
  6. ALPHAGAN [Concomitant]
  7. ZYPREXA [Concomitant]

REACTIONS (3)
  - ANXIETY [None]
  - WEIGHT DECREASED [None]
  - WEIGHT INCREASED [None]
